FAERS Safety Report 6841322-4 (Version None)
Quarter: 2010Q3

REPORT INFORMATION
  Report Type: 
  Country: None (occurrence: None)
  Receive Date: 20100714
  Receipt Date: 20070703
  Transmission Date: 20110219
  Serious: No
  Sender: FDA-Public Use
  Company Number: US-PFIZER INC-2007055191

PATIENT
  Sex: Female
  Weight: 61.2 kg

DRUGS (5)
  1. CHANTIX [Suspect]
     Indication: SMOKING CESSATION THERAPY
     Dates: start: 20070611
  2. ACETYLSALICYLIC ACID [Concomitant]
  3. POTASSIUM CHLORIDE [Concomitant]
  4. ALLEGRA [Concomitant]
  5. SYNTHROID [Concomitant]

REACTIONS (4)
  - ABNORMAL DREAMS [None]
  - INSOMNIA [None]
  - MIDDLE INSOMNIA [None]
  - THERAPY REGIMEN CHANGED [None]
